FAERS Safety Report 7965152-5 (Version None)
Quarter: 2011Q4

REPORT INFORMATION
  Report Type: 
  Country: None (occurrence: None)
  Receive Date: 20111208
  Receipt Date: 20111109
  Transmission Date: 20120403
  Serious: No
  Sender: FDA-Public Use
  Company Number: US-BAYER-2011-109775

PATIENT
  Sex: Male

DRUGS (3)
  1. LOVASTATIN [Concomitant]
  2. ALEVE (CAPLET) [Suspect]
     Indication: PAIN
     Dosage: 1 DF, PRN
     Route: 048
  3. LISINOPRIL [Concomitant]

REACTIONS (1)
  - CONSTIPATION [None]
